FAERS Safety Report 8020416-4 (Version None)
Quarter: 2012Q1

REPORT INFORMATION
  Report Type: 
  Country: None (occurrence: None)
  Receive Date: 20120103
  Receipt Date: 20111219
  Transmission Date: 20120608
  Serious: Yes (Hospitalization)
  Sender: FDA-Public Use
  Company Number: JP-SANOFI-AVENTIS-2011SA065729

PATIENT
  Age: 79 Year
  Sex: Female
  Weight: 42.7 kg

DRUGS (16)
  1. FAMOTIDINE [Suspect]
     Dosage: ORODISPERSIBLE CR TABLET
     Route: 048
     Dates: start: 20110906, end: 20111003
  2. ALENDRONATE SODIUM [Concomitant]
     Indication: OSTEOPOROSIS
  3. GRAMALIL [Concomitant]
     Indication: CEREBRAL INFARCTION
  4. KERLONE [Concomitant]
     Dates: start: 20110906
  5. HUMALOG [Concomitant]
     Indication: TYPE 2 DIABETES MELLITUS
  6. ASPIRIN [Suspect]
     Indication: CEREBRAL INFARCTION
     Route: 048
     Dates: start: 20110919, end: 20111003
  7. EPADEL [Concomitant]
  8. ZOLPIDEM [Suspect]
     Indication: INSOMNIA
     Route: 048
  9. ETODOLAC [Suspect]
     Route: 048
     Dates: start: 20110905, end: 20111003
  10. RADICUT [Suspect]
     Indication: CEREBRAL INFARCTION
     Route: 042
     Dates: start: 20110905, end: 20110918
  11. KERLONE [Concomitant]
     Indication: HYPERTENSION
     Route: 048
     Dates: start: 20110908, end: 20110920
  12. MEXITIL [Concomitant]
     Indication: ARRHYTHMIA
  13. BERAPROST SODIUM [Concomitant]
     Dates: start: 20110905
  14. LOSARTAN POTASSIUM [Concomitant]
     Indication: HYPERTENSION
  15. METHYCOBAL [Concomitant]
  16. LIVALO [Concomitant]

REACTIONS (1)
  - NEUTROPENIA [None]
